FAERS Safety Report 7934782-9 (Version None)
Quarter: 2011Q4

REPORT INFORMATION
  Report Type: 
  Country: None (occurrence: None)
  Receive Date: 20111122
  Receipt Date: 20111108
  Transmission Date: 20120403
  Serious: Yes (Death, Hospitalization)
  Sender: FDA-Public Use
  Company Number: ZA-BAYER-2011-110633

PATIENT
  Age: 5 Day

DRUGS (2)
  1. COMPRAL TAB (+#8216;SMALL PIECE+#8217;) [Suspect]
     Indication: PRODUCT USED FOR UNKNOWN INDICATION
     Dosage: UNK
  2. UNKNOWN [Concomitant]

REACTIONS (6)
  - METABOLIC ACIDOSIS [None]
  - HEPATIC FAILURE [None]
  - GASTRIC PERFORATION [None]
  - TOXICITY TO VARIOUS AGENTS [None]
  - RENAL FAILURE ACUTE [None]
  - SEPSIS [None]
